FAERS Safety Report 17214845 (Version 1)
Quarter: 2019Q4

REPORT INFORMATION
  Report Type: Report from Study
  Country: IT (occurrence: IT)
  Receive Date: 20191230
  Receipt Date: 20191230
  Transmission Date: 20200122
  Serious: Yes (Hospitalization)
  Sender: FDA-Public Use
  Company Number: IT-MYLANLABS-2019M1128471

PATIENT
  Age: 80 Year
  Sex: Male

DRUGS (2)
  1. TICLOPIDINE [Suspect]
     Active Substance: TICLOPIDINE
     Indication: ATRIAL FIBRILLATION
     Dosage: 500 MILLIGRAM, QD
     Route: 048
     Dates: end: 20190730
  2. DABIGATRAN ETEXILATE MESILATE [Interacting]
     Active Substance: DABIGATRAN ETEXILATE MESYLATE
     Indication: ATRIAL FIBRILLATION
     Dosage: 1 DOSAGE FORM, QD
     Route: 048
     Dates: end: 20190730

REACTIONS (3)
  - Rectal haemorrhage [Recovered/Resolved with Sequelae]
  - Anaemia [Recovered/Resolved with Sequelae]
  - Drug interaction [Recovered/Resolved with Sequelae]

NARRATIVE: CASE EVENT DATE: 20190723
